FAERS Safety Report 9303670 (Version 3)
Quarter: 2013Q2

REPORT INFORMATION
  Report Type: Spontaneous
  Country: JP (occurrence: JP)
  Receive Date: 20130522
  Receipt Date: 20130614
  Transmission Date: 20140414
  Serious: Yes (Disabling)
  Sender: FDA-Public Use
  Company Number: JP-ASTRAZENECA-2013SE34728

PATIENT
  Age: 26162 Day
  Sex: Female
  Weight: 54 kg

DRUGS (1)
  1. NEXIUM [Suspect]
     Indication: GASTRIC POLYPS
     Route: 048
     Dates: start: 2013

REACTIONS (1)
  - Hepatitis acute [Recovered/Resolved]
